FAERS Safety Report 11185359 (Version 3)
Quarter: 2015Q2

REPORT INFORMATION
  Report Type: Spontaneous
  Country: FR (occurrence: FR)
  Receive Date: 20150612
  Receipt Date: 20150622
  Transmission Date: 20150821
  Serious: Yes (Other)
  Sender: FDA-Public Use
  Company Number: FR-009507513-1506FRA003532

PATIENT
  Age: 75 Year
  Sex: Male
  Weight: 80 kg

DRUGS (13)
  1. TEMODAL [Suspect]
     Active Substance: TEMOZOLOMIDE
     Dosage: 140 MG, QD (1 DF 1 HOUR BEFORE RADIOTHERAPY)
     Route: 048
     Dates: start: 20150206
  2. FORLAX [Concomitant]
     Active Substance: POLYETHYLENE GLYCOL 4000
     Dosage: 10 G, QD
     Dates: start: 20141226
  3. FRAXIPARIN [Concomitant]
     Active Substance: NADROPARIN CALCIUM
     Dosage: 1 INJECTION OF 0.6 ML, QD
     Dates: start: 20141223
  4. CORTANCYL [Concomitant]
     Active Substance: PREDNISONE
     Dosage: 4 DF,QD
     Route: 048
     Dates: start: 20150225
  5. INSULATARD (INSULIN, ISOPHANE) [Concomitant]
     Dosage: 22 IU, QD
     Dates: start: 20141224
  6. PERINDOPRIL [Concomitant]
     Active Substance: PERINDOPRIL
     Dosage: HALF TABLET, QD
     Dates: start: 20141223
  7. TEMODAL [Suspect]
     Active Substance: TEMOZOLOMIDE
     Dosage: 5 MG, QD  (2 DF 1 HOUR BEFORE RADIOTHERAPY)
     Route: 048
     Dates: start: 20150206
  8. BACTRIM [Concomitant]
     Active Substance: SULFAMETHOXAZOLE\TRIMETHOPRIM
     Dosage: 1 DF, QD
     Route: 048
     Dates: start: 20150206
  9. DEROXAT [Concomitant]
     Active Substance: PAROXETINE HYDROCHLORIDE
     Dosage: 20MG/10ML (DAILY DOSE: 15 ML,QD)
     Route: 048
     Dates: start: 20150113
  10. EDUCTYL [Concomitant]
     Active Substance: POTASSIUM BITARTRATE\SODIUM BICARBONATE
     Dosage: 1 SUPPOSITORY PER DAY
     Dates: start: 20141226
  11. NOVO-NORM [Concomitant]
     Active Substance: REPAGLINIDE
     Dosage: 1 MG, TID
     Dates: start: 20141224
  12. ONDANSETRON [Concomitant]
     Active Substance: ONDANSETRON
     Dosage: 1 DF, (4 HOURS BEFORE RADIOTHERAPY) QD
     Route: 048
     Dates: start: 20150206
  13. DIFFU-K [Concomitant]
     Active Substance: POTASSIUM CHLORIDE
     Dosage: 600 MG, QD
     Dates: start: 20141223

REACTIONS (2)
  - Wrong technique in drug usage process [Unknown]
  - Mouth ulceration [Recovering/Resolving]

NARRATIVE: CASE EVENT DATE: 2015
